FAERS Safety Report 8221402-1 (Version None)
Quarter: 2012Q1

REPORT INFORMATION
  Report Type: 
  Country: None (occurrence: None)
  Receive Date: 20120320
  Receipt Date: 20120306
  Transmission Date: 20120608
  Serious: No
  Sender: FDA-Public Use
  Company Number: US-B.I. PHARMACEUTICALS,INC./RIDGEFIELD-2012-BP-04226BP

PATIENT
  Sex: Male

DRUGS (5)
  1. SPIRIVA [Suspect]
     Indication: ASTHMA
     Dosage: 18 MCG
     Route: 055
     Dates: start: 20120303, end: 20120304
  2. PREDNISONE [Concomitant]
     Indication: ASTHMA
     Route: 048
     Dates: start: 20120201, end: 20120201
  3. PAXIL [Concomitant]
     Dosage: 20 MG
     Route: 048
  4. SUBOXONE [Concomitant]
     Dosage: 16 MG
     Route: 060
  5. VENTOLIN [Concomitant]
     Indication: ASTHMA
     Route: 055

REACTIONS (1)
  - DYSPNOEA [None]
